FAERS Safety Report 5431546-5 (Version None)
Quarter: 2007Q3

REPORT INFORMATION
  Report Type: 
  Country: None (occurrence: None)
  Receive Date: 20070830
  Receipt Date: 20070822
  Transmission Date: 20080115
  Serious: Yes (Hospitalization)
  Sender: FDA-Public Use
  Company Number: IT-ASTRAZENECA-2007SE04529

PATIENT
  Age: 2632 Day
  Sex: Male

DRUGS (3)
  1. SEROQUEL [Suspect]
  2. MONTELUKAST SODIUM [Suspect]
     Indication: ASTHMA
     Route: 048
     Dates: start: 20070610, end: 20070617
  3. SERETIDE [Concomitant]
     Indication: ASTHMA
     Dosage: 25/5 MICROGRAM
     Route: 055
     Dates: start: 20070610, end: 20070618

REACTIONS (4)
  - GAIT DISTURBANCE [None]
  - MEDICATION ERROR [None]
  - SOMNOLENCE [None]
  - SPEECH DISORDER [None]
